FAERS Safety Report 6831867-5 (Version None)
Quarter: 2010Q3

REPORT INFORMATION
  Report Type: 
  Country: None (occurrence: None)
  Receive Date: 20100712
  Receipt Date: 20100706
  Transmission Date: 20110219
  Serious: Yes (Hospitalization)
  Sender: FDA-Public Use
  Company Number: US-GILEAD-2010-0030236

PATIENT
  Sex: Female

DRUGS (18)
  1. LETAIRIS [Suspect]
     Indication: PULMONARY ARTERIAL HYPERTENSION
     Route: 048
     Dates: start: 20100323, end: 20100516
  2. REVATIO [Concomitant]
  3. ASPIRIN [Concomitant]
  4. LASIX [Concomitant]
  5. LISINOPRIL [Concomitant]
  6. METOPROLOL [Concomitant]
  7. XALATAN [Concomitant]
  8. DARVOCET [Concomitant]
  9. FENTANYL [Concomitant]
  10. HYDROCODONE BITARTRATE [Concomitant]
  11. LYRICA [Concomitant]
  12. ALPRAZOLAM [Concomitant]
  13. LANTUS [Concomitant]
  14. METFORMIN [Concomitant]
  15. NOVOLOG [Concomitant]
  16. DULCOLAX [Concomitant]
  17. NEXIUM [Concomitant]
  18. KLOR-CON [Concomitant]

REACTIONS (2)
  - HEPATIC ENZYME INCREASED [None]
  - UNEVALUABLE EVENT [None]
